FAERS Safety Report 10152701 (Version 1)
Quarter: 2014Q2

REPORT INFORMATION
  Report Type: Spontaneous
  Country: US (occurrence: None)
  Receive Date: 20140502
  Receipt Date: 20140502
  Transmission Date: 20141212
  Serious: Yes (Other)
  Sender: FDA-Public Use
  Company Number: None

PATIENT
  Age: 59 Year
  Sex: Female
  Weight: 88.45 kg

DRUGS (1)
  1. DONEPEZIL [Suspect]
     Dosage: ONE PO QD
     Route: 048

REACTIONS (2)
  - Confusional state [None]
  - Product substitution issue [None]
